FAERS Safety Report 8087434-1 (Version None)
Quarter: 2012Q1

REPORT INFORMATION
  Report Type: 
  Country: None (occurrence: None)
  Receive Date: 20120128
  Receipt Date: 20110520
  Transmission Date: 20120608
  Serious: Yes (Hospitalization)
  Sender: FDA-Public Use
  Company Number: US-ABBOTT-11P-163-0727955-00

PATIENT
  Age: 77 Year
  Sex: Male

DRUGS (10)
  1. PANTOPRAZOLE [Concomitant]
     Indication: PRODUCT USED FOR UNKNOWN INDICATION
     Dosage: 20 MG DAILY
  2. FOLIC ACID [Concomitant]
     Indication: VITAMIN SUPPLEMENTATION
     Dosage: 1 MG BID
  3. METOPROLOL TARTRATE [Concomitant]
     Indication: PRODUCT USED FOR UNKNOWN INDICATION
     Dosage: 50 MG DAILY
  4. HUMIRA [Suspect]
     Indication: PRODUCT USED FOR UNKNOWN INDICATION
     Route: 058
     Dates: start: 20110101, end: 20110301
  5. FLECAINIDE ACETATE [Concomitant]
     Indication: ARRHYTHMIA
     Dosage: 100 MG BID
  6. PRAVASTATIN [Concomitant]
     Indication: BLOOD PRESSURE
     Dosage: 20 MG DAILY
  7. CARDIZEM [Concomitant]
     Indication: BLOOD PRESSURE
     Dosage: 120 MG DAILY
  8. LISINOPRIL [Concomitant]
     Indication: BLOOD PRESSURE
     Dosage: 10 MG DAILY
  9. PLAVIX [Concomitant]
     Indication: ANTICOAGULANT THERAPY
  10. PREDNISONE TAB [Concomitant]
     Indication: RHEUMATOID ARTHRITIS
     Dosage: DOSE VARIES

REACTIONS (4)
  - SEPSIS [None]
  - RHEUMATOID ARTHRITIS [None]
  - RESPIRATORY TRACT INFECTION FUNGAL [None]
  - IMMUNE SYSTEM DISORDER [None]
